FAERS Safety Report 6908419-1 (Version None)
Quarter: 2010Q3

REPORT INFORMATION
  Report Type: 
  Country: None (occurrence: None)
  Receive Date: 20100805
  Receipt Date: 20100721
  Transmission Date: 20110219
  Serious: Yes (Hospitalization, Other)
  Sender: FDA-Public Use
  Company Number: FR-BAYER-201030643GPV

PATIENT
  Age: 57 Year
  Sex: Male
  Weight: 105 kg

DRUGS (11)
  1. XARELTO [Suspect]
     Dosage: TOTAL DAILY DOSE: 10 MG
     Route: 048
     Dates: start: 20100525, end: 20100616
  2. BIPROFENID [Suspect]
     Dates: start: 20100525, end: 20100604
  3. PANTOPRAZOLE SODIUM [Suspect]
     Dates: start: 20100525, end: 20100604
  4. ACETAMINOPHEN [Concomitant]
     Indication: PAIN
     Route: 048
  5. TOPALGIC [Concomitant]
     Dosage: UNIT DOSE: 50 MG
  6. LESCOL [Concomitant]
  7. ALLOPURINOL ALMUS [Concomitant]
  8. TOCO [Concomitant]
  9. OMEXEL [Concomitant]
  10. PIASCLEDINE [Concomitant]
  11. APROVEL [Concomitant]

REACTIONS (9)
  - BACK PAIN [None]
  - BLOOD BILIRUBIN INCREASED [None]
  - CYTOLYTIC HEPATITIS [None]
  - DIARRHOEA [None]
  - FAECES DISCOLOURED [None]
  - HEPATIC ENZYME INCREASED [None]
  - HEPATITIS CHOLESTATIC [None]
  - JAUNDICE [None]
  - LIPASE INCREASED [None]
